FAERS Safety Report 4507520-X (Version None)
Quarter: 2004Q4

REPORT INFORMATION
  Report Type: 
  Country: None (occurrence: None)
  Receive Date: 20041118
  Receipt Date: 20041105
  Transmission Date: 20050328
  Serious: Yes (Other)
  Sender: FDA-Public Use
  Company Number: 2004090482

PATIENT
  Age: 75 Year
  Sex: Female

DRUGS (4)
  1. ATORVASTATIN (ATORVASTATIN) [Suspect]
     Indication: BLOOD CHOLESTEROL INCREASED
     Dosage: ORAL
     Route: 048
  2. METFORMIN HCL [Concomitant]
  3. GLIPIZIDE [Concomitant]
  4. ASPIRIN [Concomitant]

REACTIONS (4)
  - ALOPECIA [None]
  - CORONARY ARTERY SURGERY [None]
  - HEART VALVE REPLACEMENT [None]
  - HYPERTENSION [None]
